FAERS Safety Report 5499786-7 (Version None)
Quarter: 2007Q4

REPORT INFORMATION
  Report Type: 
  Country: None (occurrence: None)
  Receive Date: 20071026
  Receipt Date: 20071015
  Transmission Date: 20080405
  Serious: Yes (Other)
  Sender: FDA-Public Use
  Company Number: GB-PFIZER INC-2007075235

PATIENT
  Sex: Female
  Weight: 60.3 kg

DRUGS (4)
  1. CHAMPIX [Suspect]
     Indication: SMOKING CESSATION THERAPY
     Route: 048
     Dates: start: 20070820, end: 20070910
  2. SERETIDE [Concomitant]
     Route: 055
  3. VENTOLIN [Concomitant]
     Route: 055
  4. ALL OTHER THERAPEUTIC PRODUCTS [Concomitant]

REACTIONS (5)
  - ABNORMAL DREAMS [None]
  - DISORIENTATION [None]
  - HALLUCINATION [None]
  - NAUSEA [None]
  - PAIN [None]
